FAERS Safety Report 15300229 (Version 3)
Quarter: 2020Q4

REPORT INFORMATION
  Report Type: Report from Study
  Country: ZA (occurrence: ZA)
  Receive Date: 20180821
  Receipt Date: 20201103
  Transmission Date: 20210113
  Serious: Yes (Life-Threatening)
  Sender: FDA-Public Use
  Company Number: ZA-VIIV HEALTHCARE LIMITED-ZA2018GSK149675

PATIENT
  Age: 42 Year
  Sex: Female
  Weight: 87.9 kg

DRUGS (6)
  1. DOLUTEGRAVIR [Suspect]
     Active Substance: DOLUTEGRAVIR
     Dosage: 50 MG, QD
     Route: 048
     Dates: start: 20180830
  2. PYRIDOXINE [Suspect]
     Active Substance: PYRIDOXINE
     Indication: ANTIBIOTIC PROPHYLAXIS
     Dosage: 25 MG, QD
     Route: 048
     Dates: start: 20170720, end: 20180628
  3. EMTRICITABINE+TENOFOVIR ALAFENAMIDE [Suspect]
     Active Substance: EMTRICITABINE\TENOFOVIR ALAFENAMIDE FUMARATE
     Dosage: 25/200 MG, QD
     Route: 048
     Dates: start: 20180830
  4. DOLUTEGRAVIR [Suspect]
     Active Substance: DOLUTEGRAVIR
     Indication: HIV INFECTION
     Dosage: 50 MG, QD
     Route: 048
     Dates: start: 20170727, end: 20180814
  5. EMTRICITABINE+TENOFOVIR ALAFENAMIDE [Suspect]
     Active Substance: EMTRICITABINE\TENOFOVIR ALAFENAMIDE FUMARATE
     Indication: HIV INFECTION
     Dosage: 25/200 MG, QD
     Route: 048
     Dates: start: 20170727, end: 20180814
  6. ISONIAZID. [Suspect]
     Active Substance: ISONIAZID
     Indication: ANTIBIOTIC PROPHYLAXIS
     Dosage: 300 MG, QD
     Route: 048
     Dates: start: 20170720, end: 20180628

REACTIONS (1)
  - Hepatic function abnormal [Recovered/Resolved]

NARRATIVE: CASE EVENT DATE: 20180628
